FAERS Safety Report 6283571-2 (Version None)
Quarter: 2009Q3

REPORT INFORMATION
  Report Type: 
  Country: None (occurrence: None)
  Receive Date: 20090724
  Receipt Date: 20090422
  Transmission Date: 20100115
  Serious: Yes (Hospitalization, Other)
  Sender: FDA-Public Use
  Company Number: US-ALEXION-A200900347

PATIENT
  Age: 54 Year
  Sex: Male
  Weight: 97.3 kg

DRUGS (25)
  1. SOLIRIS [Suspect]
     Indication: PROPHYLAXIS AGAINST TRANSPLANT REJECTION
     Dosage: 1200 MG, SINGLE
     Route: 042
  2. SOLIRIS [Suspect]
     Dosage: 600 MG, SINGLE
     Route: 042
  3. SOLIRIS [Suspect]
     Dosage: 600 MG, SINGLE
     Route: 042
  4. CELLCEPT [Concomitant]
     Dosage: 1000 MG, BID
     Route: 048
  5. CELLCEPT [Concomitant]
     Dosage: 750 MG, BID
     Route: 048
  6. PREDNISONE TAB [Concomitant]
     Dosage: 5 MG, QD, TAPER AS INDICATED
     Route: 048
  7. PRILOSEC [Concomitant]
     Dosage: 20 MG, QD
     Route: 048
  8. HYDRALAZINE HCL [Concomitant]
     Dosage: 25 MG, BID
     Route: 048
  9. COZAAR [Concomitant]
     Dosage: 50 MG, BID
     Route: 048
  10. NEORAL [Concomitant]
     Dosage: 25 MG, 2 CAPS (75 MG), BID
     Route: 048
  11. LIPITOR [Concomitant]
     Dosage: 60 MG, QD
     Route: 048
  12. LIPITOR [Concomitant]
     Dosage: 20 MG, QD
     Route: 048
  13. ASPIRIN [Concomitant]
     Dosage: 81 MG, QD
     Route: 048
  14. TACROLIMUS [Concomitant]
     Dosage: 5 MG, BID, VARIABLE
     Route: 048
  15. VALGANCICLOVIR HCL [Concomitant]
     Dosage: 450 MG, QD
     Route: 048
  16. FLUCONAZOLE [Concomitant]
     Dosage: 100 MG, QD
     Route: 048
  17. SULFAMETHOXAZOLE AND TRIMETHOPRIM [Concomitant]
     Dosage: 800 MG/160 MG, QD
     Route: 048
  18. PANTOPRAZOLE SODIUM [Concomitant]
     Dosage: 40 MG, QD
     Route: 048
  19. MULTIVITAMIN                       /00831701/ [Concomitant]
     Dosage: 1 TAB, QD
     Route: 048
  20. SENNA-MINT WAF [Concomitant]
     Indication: CONSTIPATION
     Dosage: 8.6 MG, 1-2 TABS, Q4H, PRN
     Route: 048
  21. COLACE [Concomitant]
     Indication: CONSTIPATION
     Dosage: 100 MG, 1-2 TABS, PRN
     Route: 048
  22. PERCOCET [Concomitant]
     Indication: PAIN
     Dosage: 1-2 TABS, Q4H, PRN
     Route: 048
  23. METOPROLOL SUCCINATE [Concomitant]
     Dosage: 50 MG, BID
     Route: 048
  24. DILTIAZEM [Concomitant]
     Indication: ATRIAL FIBRILLATION
     Dosage: 120 MG, QD
     Route: 048
  25. ALLOPURINOL [Concomitant]
     Dosage: 100 MG, QD
     Route: 048

REACTIONS (9)
  - ATRIAL FIBRILLATION [None]
  - ATRIAL TACHYCARDIA [None]
  - BRADYCARDIA [None]
  - GRAND MAL CONVULSION [None]
  - HYPERTENSION [None]
  - HYPOTENSION [None]
  - HYPOVOLAEMIA [None]
  - ILEUS [None]
  - POSTICTAL STATE [None]
